FAERS Safety Report 9101333 (Version 2)
Quarter: 2013Q2

REPORT INFORMATION
  Report Type: Report from Study
  Country: DE (occurrence: DE)
  Receive Date: 20130218
  Receipt Date: 20130626
  Transmission Date: 20140414
  Serious: Yes (Hospitalization, Disabling)
  Sender: FDA-Public Use
  Company Number: DE-GILEAD-2013-0070034

PATIENT
  Age: 84 Year
  Sex: Female

DRUGS (2)
  1. AMBRISENTAN [Suspect]
     Indication: PULMONARY ARTERIAL HYPERTENSION
     Dosage: 10 MG, QD
     Route: 048
     Dates: start: 20101119
  2. AMBRISENTAN [Suspect]
     Dosage: 5 MG, QD
     Route: 048
     Dates: start: 200910, end: 20101118

REACTIONS (1)
  - Femoral neck fracture [Not Recovered/Not Resolved]
